FAERS Safety Report 10766086 (Version 1)
Quarter: 2015Q1

REPORT INFORMATION
  Report Type: Spontaneous
  Country: US (occurrence: US)
  Receive Date: 20150205
  Receipt Date: 20150205
  Transmission Date: 20150721
  Serious: No
  Sender: FDA-Public Use
  Company Number: US-PFIZER INC-2015045183

PATIENT
  Age: 76 Year
  Sex: Male
  Weight: 70 kg

DRUGS (4)
  1. METAXALONE. [Suspect]
     Active Substance: METAXALONE
     Indication: MUSCULOSKELETAL PAIN
  2. METAXALONE. [Suspect]
     Active Substance: METAXALONE
     Indication: MUSCLE ATROPHY
  3. METAXALONE. [Suspect]
     Active Substance: METAXALONE
     Indication: MUSCLE DISORDER
     Dosage: 800 MG, AS NEEDED 800 MG, (1 TO 2 DAY TABLETS DAILY AS NEEDED)
     Route: 048
     Dates: start: 2013
  4. METAXALONE. [Suspect]
     Active Substance: METAXALONE
     Indication: ARTHROPATHY

REACTIONS (1)
  - Somnolence [Unknown]
